FAERS Safety Report 16627560 (Version 1)
Quarter: 2019Q3

REPORT INFORMATION
  Report Type: Spontaneous
  Country: GB (occurrence: GB)
  Receive Date: 20190724
  Receipt Date: 20190724
  Transmission Date: 20191004
  Serious: Yes (Disabling, Other)
  Sender: FDA-Public Use
  Company Number: GB-MYLANLABS-2019M1068736

PATIENT
  Age: 80 Year
  Sex: Female
  Weight: 80.8 kg

DRUGS (16)
  1. HIPREX                             /00054403/ [Concomitant]
     Dosage: 2 GRAM, QD
     Dates: start: 20181108
  2. FUROSEMIDE. [Concomitant]
     Active Substance: FUROSEMIDE
     Dosage: 40 MILLIGRAM, QD
     Dates: start: 20190102
  3. PREDNISOLONE. [Concomitant]
     Active Substance: PREDNISOLONE
     Dosage: 30 MILLIGRAM, QD
     Dates: start: 20181105
  4. EPLERENONE. [Suspect]
     Active Substance: EPLERENONE
     Indication: CARDIAC DISORDER
     Dosage: 25 MILLIGRAM
  5. ENTOCORT [Concomitant]
     Active Substance: BUDESONIDE
     Dosage: 9 MILLIGRAM, QD
     Dates: start: 20181130
  6. CODEINE [Concomitant]
     Active Substance: CODEINE
     Dosage: ONE OR TWO TO BE TAKEN UP TO EIGHT TIMES A DAY
     Dates: start: 20190129
  7. ACETYLSALICYLIC ACID [Concomitant]
     Active Substance: ASPIRIN
     Dosage: 75 MILLIGRAM, QD
     Dates: start: 20190118
  8. BETMIGA [Concomitant]
     Active Substance: MIRABEGRON
     Dosage: 50 MILLIGRAM, QD
     Dates: start: 20190109
  9. LOPERAMIDE [Concomitant]
     Active Substance: LOPERAMIDE
     Dosage: 4 MILLIGRAM
     Dates: start: 20181109
  10. RAMIPRIL. [Concomitant]
     Active Substance: RAMIPRIL
     Dosage: 5 MILLIGRAM, QD
     Dates: start: 20190102
  11. CLOPIDOGREL [Concomitant]
     Active Substance: CLOPIDOGREL BISULFATE
     Dosage: FOR 12 MONTHS
     Dates: start: 20190102
  12. RANITIDINE. [Concomitant]
     Active Substance: RANITIDINE
     Dosage: 300 MILLIGRAM, QD
     Dates: start: 20181217
  13. LAXIDO [Concomitant]
     Active Substance: POLYETHYLENE GLYCOL 3350\POTASSIUM CHLORIDE\SODIUM BICARBONATE\SODIUM CHLORIDE
     Dosage: CAN BE INCREASED UP TO SIX SACHETS IF NEEDED
     Route: 048
     Dates: start: 20190118
  14. PARACETAMOL [Concomitant]
     Active Substance: ACETAMINOPHEN
     Dosage: FOUR TIMES DAILY
     Dates: start: 20190109
  15. OMEPRAZOLE. [Concomitant]
     Active Substance: OMEPRAZOLE
     Dosage: 20 MILLIGRAM, QD
     Dates: start: 20181227
  16. ATORVASTATIN [Concomitant]
     Active Substance: ATORVASTATIN
     Dosage: EVENING
     Dates: start: 20190102

REACTIONS (4)
  - Colitis [Recovered/Resolved]
  - Diarrhoea [Recovered/Resolved]
  - Abnormal loss of weight [Recovered/Resolved]
  - Anaemia [Recovered/Resolved]

NARRATIVE: CASE EVENT DATE: 20181102
